FAERS Safety Report 17089946 (Version 1)
Quarter: 2019Q4

REPORT INFORMATION
  Report Type: Report from Study
  Country: None (occurrence: ES)
  Receive Date: 20191129
  Receipt Date: 20191129
  Transmission Date: 20200122
  Serious: Yes (Hospitalization)
  Sender: FDA-Public Use
  Company Number: ES-ABBVIE-19K-144-3174751-00

PATIENT
  Age: 77 Year
  Sex: Female
  Weight: 86 kg

DRUGS (1)
  1. ADALIMUMAB [Suspect]
     Active Substance: ADALIMUMAB
     Indication: PSORIASIS
     Dosage: 40 MG CADA 3 SEMANAS
     Route: 058
     Dates: start: 20170102, end: 20191030

REACTIONS (1)
  - Cholangitis acute [Recovered/Resolved with Sequelae]

NARRATIVE: CASE EVENT DATE: 20191030
